FAERS Safety Report 24225529 (Version 1)
Quarter: 2024Q3

REPORT INFORMATION
  Report Type: Spontaneous
  Country: US (occurrence: US)
  Receive Date: 20240820
  Receipt Date: 20240820
  Transmission Date: 20241017
  Serious: Yes (Hospitalization, Other)
  Sender: DR REDDYS
  Company Number: US-DRL-USA-LIT/USA/24/0011709

PATIENT
  Age: 33 Year
  Sex: Female

DRUGS (13)
  1. CARMUSTINE [Suspect]
     Active Substance: CARMUSTINE
     Indication: Myasthenia gravis
     Dosage: DAY -6 OF AUTOLOGOUS HCT
  2. MELPHALAN [Suspect]
     Active Substance: MELPHALAN
     Indication: Myasthenia gravis
     Dosage: ON DAY -1 OF AUTOLOGOUS HCT
  3. RITUXIMAB [Suspect]
     Active Substance: RITUXIMAB
     Indication: Myasthenia gravis
  4. PREDNISONE [Suspect]
     Active Substance: PREDNISONE
     Indication: Myasthenia gravis
     Dosage: PRIOR TO THE HDIT/HCT
  5. PREDNISONE [Suspect]
     Active Substance: PREDNISONE
     Dosage: (0.5 MG/KG/DAY).
  6. PYRIDOSTIGMINE [Suspect]
     Active Substance: PYRIDOSTIGMINE
     Indication: Myasthenia gravis
  7. MYCOPHENOLATE MOFETIL [Suspect]
     Active Substance: MYCOPHENOLATE MOFETIL
     Indication: Myasthenia gravis
  8. HUMAN IMMUNOGLOBULIN G [Suspect]
     Active Substance: HUMAN IMMUNOGLOBULIN G
     Indication: Myasthenia gravis
     Dosage: EVERY 2 WEEKS
  9. ECULIZUMAB [Suspect]
     Active Substance: ECULIZUMAB
     Indication: Myasthenia gravis
  10. ETOPOSIDE [Suspect]
     Active Substance: ETOPOSIDE
     Indication: Myasthenia gravis
     Dosage: FROM DAY -5 TO -2 OF AUTOLOGOUS HCT
  11. CYTARABINE [Suspect]
     Active Substance: CYTARABINE
     Indication: Myasthenia gravis
     Dosage: FROM DAY -5 TO -2 OF AUTOLOGOUS HCT
  12. ANTI-THYMOCYTE GLOBULIN (RABBIT) NOS [Suspect]
     Active Substance: LAPINE T-LYMPHOCYTE IMMUNE GLOBULIN
     Indication: Myasthenia gravis
     Dosage: (2.5 MG/KG/D) WAS ADMINISTERED INTRAVENOUSLY ON DAYS -2 AND -1
  13. METHYLPREDNISOLONE [Suspect]
     Active Substance: METHYLPREDNISOLONE
     Indication: Myasthenia gravis

REACTIONS (9)
  - Febrile neutropenia [Unknown]
  - Epstein-Barr virus infection reactivation [Recovered/Resolved]
  - Rash [Recovered/Resolved]
  - Hypoxia [Unknown]
  - Condition aggravated [Recovered/Resolved]
  - Vomiting [Unknown]
  - Nausea [Unknown]
  - Dry mouth [Unknown]
  - Product use in unapproved indication [Unknown]
